FAERS Safety Report 4374190-3 (Version None)
Quarter: 2004Q2

REPORT INFORMATION
  Report Type: 
  Country: None (occurrence: None)
  Receive Date: 20040604
  Receipt Date: 20040601
  Transmission Date: 20050107
  Serious: Yes (Hospitalization, Other)
  Sender: FDA-Public Use
  Company Number: US-JNJFOC-20040600202

PATIENT
  Age: 50 Year
  Sex: Female

DRUGS (3)
  1. TOPAMAX [Suspect]
     Indication: DEPRESSION
     Dosage: 200 MG, IN 1 DAY, ORAL
     Route: 048
  2. VENLAFAXINE HCL [Concomitant]
  3. RISPERDAL [Concomitant]

REACTIONS (17)
  - ACTIVITIES OF DAILY LIVING IMPAIRED [None]
  - ANOREXIA [None]
  - APATHY [None]
  - DECREASED INTEREST [None]
  - DELUSION OF REFERENCE [None]
  - DEPRESSED MOOD [None]
  - DEPRESSION [None]
  - DISTURBANCE IN ATTENTION [None]
  - INSOMNIA [None]
  - LACK OF SPONTANEOUS SPEECH [None]
  - MENTAL STATUS CHANGES [None]
  - POVERTY OF SPEECH [None]
  - PSYCHOMOTOR RETARDATION [None]
  - PSYCHOTIC DISORDER [None]
  - SUICIDAL IDEATION [None]
  - THERAPEUTIC RESPONSE DELAYED [None]
  - THOUGHT INSERTION [None]
